FAERS Safety Report 9850239 (Version 1)
Quarter: 2013Q4

REPORT INFORMATION
  Report Type: Spontaneous
  Country: US (occurrence: None)
  Receive Date: 20131226
  Receipt Date: 20131226
  Transmission Date: 20140711
  Serious: Yes (Other)
  Sender: FDA-Public Use
  Company Number: PHEH2012US022910

PATIENT
  Age: 72 Year
  Sex: Female

DRUGS (13)
  1. DIOVAN [Suspect]
  2. METOPROLOL (METOPROLOL) [Concomitant]
  3. NORVAS (AMLODIPINE BESILATE) [Concomitant]
  4. LEVOXYL (LEVOTHYROXINE SODIUM) [Concomitant]
  5. FUROSEMIDE (FUROSEMIDE) [Concomitant]
  6. WARFARIN (WARFARIN) [Concomitant]
  7. PRAVASTATIN (PRAVASTATIN) [Concomitant]
  8. SOTALOL HCL (SOTALOL HYDROCHLORIDE) [Concomitant]
  9. CALCITROL (CALCIUM CARBONATE, ERGOCALCIFEROL, RETINOL) [Concomitant]
  10. ALLOPURINOL (ALLOPURINOL) [Concomitant]
  11. XANAX (ALPRAZOLAM) [Concomitant]
  12. MULTIVITAMINS [Concomitant]
  13. TEKTURNA (ALISKIREN FUMARATE) [Concomitant]

REACTIONS (1)
  - Renal failure [None]
